FAERS Safety Report 6253826-6 (Version None)
Quarter: 2009Q2

REPORT INFORMATION
  Report Type: 
  Country: None (occurrence: None)
  Receive Date: 20090630
  Receipt Date: 20090630
  Transmission Date: 20091009
  Serious: No
  Sender: FDA-Public Use
  Company Number: None

PATIENT
  Age: 65 Year
  Sex: Male
  Weight: 95.2554 kg

DRUGS (1)
  1. DIVALPROEX SODIUM [Suspect]
     Indication: MIGRAINE PROPHYLAXIS
     Dosage: 1 BID PO
     Route: 048
     Dates: start: 20090327, end: 20090402

REACTIONS (2)
  - MIGRAINE [None]
  - PRODUCT SUBSTITUTION ISSUE [None]
